FAERS Safety Report 26131802 (Version 1)
Quarter: 2025Q4

REPORT INFORMATION
  Report Type: Spontaneous
  Country: EU (occurrence: EU)
  Receive Date: 20251208
  Receipt Date: 20251208
  Transmission Date: 20260118
  Serious: Yes (Hospitalization)
  Sender: MYLAN
  Company Number: EU-MYLANLABS-2025M1099746

PATIENT
  Age: 34 Year
  Sex: Male

DRUGS (20)
  1. SILDENAFIL [Suspect]
     Active Substance: SILDENAFIL
     Indication: Performance enhancing product use
     Dosage: UNK
  2. SILDENAFIL [Suspect]
     Active Substance: SILDENAFIL
     Dosage: UNK
     Route: 065
  3. SILDENAFIL [Suspect]
     Active Substance: SILDENAFIL
     Dosage: UNK
     Route: 065
  4. SILDENAFIL [Suspect]
     Active Substance: SILDENAFIL
     Dosage: UNK
  5. TESTOSTERONE [Suspect]
     Active Substance: TESTOSTERONE
     Indication: Performance enhancing product use
     Dosage: UNK
  6. TESTOSTERONE [Suspect]
     Active Substance: TESTOSTERONE
     Dosage: UNK
     Route: 065
  7. TESTOSTERONE [Suspect]
     Active Substance: TESTOSTERONE
     Dosage: UNK
     Route: 065
  8. TESTOSTERONE [Suspect]
     Active Substance: TESTOSTERONE
     Dosage: UNK
  9. NANDROLONE [Suspect]
     Active Substance: NANDROLONE
     Indication: Performance enhancing product use
     Dosage: UNK
  10. NANDROLONE [Suspect]
     Active Substance: NANDROLONE
     Dosage: UNK
     Route: 065
  11. NANDROLONE [Suspect]
     Active Substance: NANDROLONE
     Dosage: UNK
     Route: 065
  12. NANDROLONE [Suspect]
     Active Substance: NANDROLONE
     Dosage: UNK
  13. TRENBOLONE [Suspect]
     Active Substance: TRENBOLONE
     Indication: Product used for unknown indication
     Dosage: UNK
  14. TRENBOLONE [Suspect]
     Active Substance: TRENBOLONE
     Dosage: UNK
     Route: 065
  15. TRENBOLONE [Suspect]
     Active Substance: TRENBOLONE
     Dosage: UNK
     Route: 065
  16. TRENBOLONE [Suspect]
     Active Substance: TRENBOLONE
     Dosage: UNK
  17. OXYBATE [Suspect]
     Active Substance: OXYBATE
     Indication: Product used for unknown indication
     Dosage: UNK
  18. OXYBATE [Suspect]
     Active Substance: OXYBATE
     Dosage: UNK
     Route: 065
  19. OXYBATE [Suspect]
     Active Substance: OXYBATE
     Dosage: UNK
     Route: 065
  20. OXYBATE [Suspect]
     Active Substance: OXYBATE
     Dosage: UNK

REACTIONS (10)
  - Psychiatric symptom [Unknown]
  - Feeling of despair [Unknown]
  - Suicidal ideation [Unknown]
  - Hyperhidrosis [Unknown]
  - Restlessness [Unknown]
  - Paranoia [Unknown]
  - Mood swings [Unknown]
  - Drug abuse [Unknown]
  - Tachycardia [Unknown]
  - Anger [Unknown]
